FAERS Safety Report 20973148 (Version 3)
Quarter: 2022Q3

REPORT INFORMATION
  Report Type: Report from Study
  Country: US (occurrence: US)
  Receive Date: 20220617
  Receipt Date: 20220729
  Transmission Date: 20221027
  Serious: Yes (Other)
  Sender: FDA-Public Use
  Company Number: US-NOVARTISTESTPH-NVSC2022US138844

PATIENT
  Age: 59 Year
  Sex: Female

DRUGS (3)
  1. ENTRESTO [Suspect]
     Active Substance: SACUBITRIL\VALSARTAN
     Indication: Product use in unapproved indication
     Dosage: UNK UNK, BID
     Route: 048
     Dates: start: 20220518
  2. CARVEDILOL [Suspect]
     Active Substance: CARVEDILOL
     Indication: Product used for unknown indication
     Dosage: UNK
     Route: 065
  3. CARVEDILOL [Suspect]
     Active Substance: CARVEDILOL
     Dosage: UNK (DOUBLED)
     Route: 065

REACTIONS (11)
  - Cardiomyopathy [Unknown]
  - Altered state of consciousness [Unknown]
  - Chest pain [Unknown]
  - Feeling abnormal [Unknown]
  - Diarrhoea [Unknown]
  - Vomiting [Unknown]
  - Dizziness [Unknown]
  - Decreased appetite [Unknown]
  - Headache [Unknown]
  - Asthenia [Unknown]
  - Fatigue [Unknown]

NARRATIVE: CASE EVENT DATE: 20220501
